FAERS Safety Report 15773362 (Version 2)
Quarter: 2019Q1

REPORT INFORMATION
  Report Type: Spontaneous
  Country: JP (occurrence: JP)
  Receive Date: 20181228
  Receipt Date: 20190222
  Transmission Date: 20190417
  Serious: Yes (Other)
  Sender: FDA-Public Use
  Company Number: JP-ALLERGAN-1859723US

PATIENT
  Age: 30 Year
  Sex: Male

DRUGS (3)
  1. DIAZEPAM. [Concomitant]
     Active Substance: DIAZEPAM
     Indication: PRODUCT USED FOR UNKNOWN INDICATION
     Dosage: UNK
     Route: 065
     Dates: start: 2002
  2. SEPAZON [Concomitant]
     Active Substance: CLOXAZOLAM
     Indication: PRODUCT USED FOR UNKNOWN INDICATION
     Dosage: UNK
     Route: 065
     Dates: start: 2002
  3. BOTOX [Suspect]
     Active Substance: ONABOTULINUMTOXINA
     Indication: BLEPHAROSPASM
     Dosage: UNK, SINGLE
     Route: 030
     Dates: start: 201102, end: 201102

REACTIONS (4)
  - Blindness [Unknown]
  - Condition aggravated [Not Recovered/Not Resolved]
  - Visual field defect [Not Recovered/Not Resolved]
  - Glare [Not Recovered/Not Resolved]

NARRATIVE: CASE EVENT DATE: 2012
